FAERS Safety Report 8920944 (Version 1)
Quarter: 2012Q4

REPORT INFORMATION
  Report Type: 
  Country: US (occurrence: US)
  Receive Date: 20121123
  Receipt Date: 20121123
  Transmission Date: 20130627
  Serious: Yes (Hospitalization)
  Sender: FDA-Public Use
  Company Number: US-BRISTOL-MYERS SQUIBB COMPANY-17125188

PATIENT
  Age: 70 Year
  Sex: Female
  Weight: 100 kg

DRUGS (4)
  1. COUMADIN [Suspect]
  2. TREPROSTINIL [Suspect]
     Indication: PULMONARY ARTERIAL HYPERTENSION
     Dosage: 1 DF-18-54 microgram(6Microgram),Aerosol for inhalation
     Route: 055
     Dates: start: 20120524
  3. LETAIRIS [Concomitant]
     Indication: CONNECTIVE TISSUE DISORDER
     Dosage: Tabs.
     Route: 048
     Dates: start: 20111028
  4. LETAIRIS [Concomitant]
     Indication: PULMONARY HYPERTENSION
     Dosage: Tabs.
     Route: 048
     Dates: start: 20111028

REACTIONS (3)
  - Cardiac failure [Unknown]
  - Gastrointestinal haemorrhage [Unknown]
  - Haemoglobin decreased [Unknown]
